FAERS Safety Report 11871798 (Version 2)
Quarter: 2016Q1

REPORT INFORMATION
  Report Type: Spontaneous
  Country: BR (occurrence: BR)
  Receive Date: 20151228
  Receipt Date: 20160115
  Transmission Date: 20160526
  Serious: Yes (Other)
  Sender: FDA-Public Use
  Company Number: BR-PFIZER INC-2015464114

PATIENT
  Age: 72 Year
  Sex: Male
  Weight: 119 kg

DRUGS (1)
  1. CELEBRA [Suspect]
     Active Substance: CELECOXIB
     Indication: PAIN
     Dosage: 1 TABLET OF 200 MG, DAILY
     Route: 048
     Dates: start: 2011, end: 2011

REACTIONS (1)
  - Abasia [Unknown]
